FAERS Safety Report 5456148-6 (Version None)
Quarter: 2007Q3

REPORT INFORMATION
  Report Type: 
  Country: None (occurrence: None)
  Receive Date: 20070918
  Receipt Date: 20061109
  Transmission Date: 20080115
  Serious: Yes (Other)
  Sender: FDA-Public Use
  Company Number: US-ASTRAZENECA-2006UW23395

PATIENT
  Age: 56 Year
  Sex: Female
  Weight: 77.1 kg

DRUGS (5)
  1. SEROQUEL [Suspect]
     Indication: PREMATURE MENOPAUSE
     Route: 048
     Dates: end: 20060501
  2. STRATTERA [Concomitant]
  3. CLONAZEPAM [Concomitant]
  4. NEXIUM [Concomitant]
  5. MANY UNSPECIFIED MEDICATIONS [Concomitant]

REACTIONS (5)
  - CONVULSION [None]
  - DIABETES MELLITUS [None]
  - HYPERTENSION [None]
  - LOSS OF CONSCIOUSNESS [None]
  - WEIGHT INCREASED [None]
